FAERS Safety Report 24712813 (Version 1)
Quarter: 2024Q4

REPORT INFORMATION
  Report Type: Spontaneous
  Country: CN (occurrence: CN)
  Receive Date: 20241209
  Receipt Date: 20241209
  Transmission Date: 20250115
  Serious: Yes (Hospitalization)
  Sender: ELI LILLY AND COMPANY
  Company Number: CN-ELI_LILLY_AND_COMPANY-CN202411018790

PATIENT
  Age: 55 Year
  Sex: Male
  Weight: 84.5 kg

DRUGS (3)
  1. ALIMTA [Suspect]
     Active Substance: PEMETREXED DISODIUM
     Indication: Product used for unknown indication
     Dosage: 1 G, DAILY
     Route: 042
     Dates: start: 20241022, end: 20241022
  2. SODIUM CHLORIDE [Concomitant]
     Active Substance: SODIUM CHLORIDE
     Indication: Product used for unknown indication
     Dosage: 100 ML, DAILY
     Dates: start: 20241022, end: 20241022
  3. AUMOLERTINIB [Concomitant]
     Active Substance: AUMOLERTINIB
     Indication: Product used for unknown indication
     Dosage: 110 MG, DAILY
     Route: 048
     Dates: start: 20241021, end: 20241023

REACTIONS (1)
  - Skin hyperpigmentation [Unknown]

NARRATIVE: CASE EVENT DATE: 20241023
